FAERS Safety Report 4818201-7 (Version None)
Quarter: 2005Q4

REPORT INFORMATION
  Report Type: 
  Country: None (occurrence: None)
  Receive Date: 20051101
  Receipt Date: 20051101
  Transmission Date: 20060501
  Serious: Yes (Death, Life-Threatening, Hospitalization)
  Sender: FDA-Public Use
  Company Number: None

PATIENT
  Age: 27 Year
  Sex: Male
  Weight: 71.6 kg

DRUGS (20)
  1. FLUDARABINE [Suspect]
     Indication: ACUTE MYELOID LEUKAEMIA
     Dosage: 65MG   QD   IV
     Route: 042
     Dates: start: 20051006, end: 20051010
  2. FLUDARABINE [Suspect]
     Indication: CHEMOTHERAPY
     Dosage: 65MG   QD   IV
     Route: 042
     Dates: start: 20051006, end: 20051010
  3. FLUDARABINE [Suspect]
     Indication: STEM CELL TRANSPLANT
     Dosage: 65MG   QD   IV
     Route: 042
     Dates: start: 20051006, end: 20051010
  4. CYTOXAN [Suspect]
     Indication: ACUTE MYELOID LEUKAEMIA
     Dosage: 1.9G   QD  IV
     Route: 042
     Dates: start: 20051011, end: 20051012
  5. CYTOXAN [Suspect]
     Indication: CHEMOTHERAPY
     Dosage: 1.9G   QD  IV
     Route: 042
     Dates: start: 20051011, end: 20051012
  6. CYTOXAN [Suspect]
     Indication: STEM CELL TRANSPLANT
     Dosage: 1.9G   QD  IV
     Route: 042
     Dates: start: 20051011, end: 20051012
  7. ANTI-THYMOCYTE GLOBULIN   (ATG 2250MGX2)   101105-101205 [Suspect]
     Indication: ACUTE MYELOID LEUKAEMIA
     Dates: start: 20051011, end: 20051012
  8. ANTI-THYMOCYTE GLOBULIN   (ATG 2250MGX2)   101105-101205 [Suspect]
     Indication: CHEMOTHERAPY
     Dates: start: 20051011, end: 20051012
  9. ANTI-THYMOCYTE GLOBULIN   (ATG 2250MGX2)   101105-101205 [Suspect]
     Indication: STEM CELL TRANSPLANT
     Dates: start: 20051011, end: 20051012
  10. TOBRAMYCIN [Concomitant]
  11. CIPROFLOXACIN [Concomitant]
  12. FLAGYL [Concomitant]
  13. VANCOMYCIN [Concomitant]
  14. VORICONAZOLE [Concomitant]
  15. CAPSOFUNGIN [Concomitant]
  16. ACYCLOVIR [Concomitant]
  17. CELLCEPT [Concomitant]
  18. CYCLOSPORINE [Concomitant]
  19. FILGRASTIM [Concomitant]
  20. HYDROCORTISONE [Concomitant]

REACTIONS (9)
  - ACUTE RESPIRATORY DISTRESS SYNDROME [None]
  - COMPLICATIONS OF TRANSPLANT SURGERY [None]
  - CORD BLOOD TRANSPLANT THERAPY [None]
  - HAEMOPTYSIS [None]
  - INFECTION [None]
  - PLEURITIC PAIN [None]
  - RESPIRATORY FAILURE [None]
  - STEM CELL TRANSPLANT [None]
  - SURGICAL PROCEDURE REPEATED [None]
